FAERS Safety Report 5309113-3 (Version None)
Quarter: 2007Q2

REPORT INFORMATION
  Report Type: 
  Country: None (occurrence: None)
  Receive Date: 20070426
  Receipt Date: 20070417
  Transmission Date: 20071010
  Serious: Yes (Hospitalization)
  Sender: FDA-Public Use
  Company Number: IT-AMGEN-UK215447

PATIENT
  Age: 53 Year
  Sex: Female

DRUGS (3)
  1. NEUPOGEN [Suspect]
     Indication: CHEMOTHERAPY
     Route: 065
     Dates: start: 20060213
  2. PACLITAXEL [Suspect]
     Route: 065
     Dates: start: 20060210, end: 20060210
  3. OMEPRAZOLE [Concomitant]
     Route: 048

REACTIONS (1)
  - BRONCHOPNEUMONIA [None]
